FAERS Safety Report 4293661-1 (Version None)
Quarter: 2004Q1

REPORT INFORMATION
  Report Type: 
  Country: None (occurrence: None)
  Receive Date: 20040212
  Receipt Date: 20031209
  Transmission Date: 20041129
  Serious: Yes (Other)
  Sender: FDA-Public Use
  Company Number: PHEH2003US11372

PATIENT
  Age: 59 Year
  Sex: Female
  Weight: 86 kg

DRUGS (1)
  1. ZELNORM [Suspect]
     Dosage: 3 MG, BID
     Dates: start: 20030501, end: 20030901

REACTIONS (3)
  - ABDOMINAL PAIN [None]
  - LIPASE INCREASED [None]
  - PANCREATITIS [None]
